FAERS Safety Report 16352121 (Version 3)
Quarter: 2019Q3

REPORT INFORMATION
  Report Type: Report from Study
  Country: US (occurrence: US)
  Receive Date: 20190524
  Receipt Date: 20190718
  Transmission Date: 20191004
  Serious: Yes (Hospitalization, Other)
  Sender: FDA-Public Use
  Company Number: US-HTU-2017US014426

PATIENT
  Sex: Female

DRUGS (1)
  1. VALCHLOR [Suspect]
     Active Substance: MECHLORETHAMINE
     Indication: CUTANEOUS T-CELL LYMPHOMA
     Dosage: THIN FILM, QD
     Route: 061
     Dates: start: 201502

REACTIONS (6)
  - Cystitis [Unknown]
  - Therapy cessation [Unknown]
  - Bladder operation [Unknown]
  - Bladder cancer [Unknown]
  - Confusional state [Unknown]
  - Surgery [Unknown]
